FAERS Safety Report 13945573 (Version 6)
Quarter: 2019Q3

REPORT INFORMATION
  Report Type: Spontaneous
  Country: US (occurrence: US)
  Receive Date: 20170907
  Receipt Date: 20190731
  Transmission Date: 20191004
  Serious: No
  Sender: FDA-Public Use
  Company Number: US-PFIZER INC-2017383329

PATIENT
  Age: 75 Year
  Sex: Female

DRUGS (1)
  1. METHOTREXATE SODIUM. [Suspect]
     Active Substance: METHOTREXATE SODIUM
     Indication: RHEUMATOID ARTHRITIS
     Dosage: 25 MG, WEEKLY
     Route: 058
     Dates: end: 201606

REACTIONS (13)
  - Butterfly rash [Recovered/Resolved]
  - Abdominal distension [Unknown]
  - Drug ineffective [Unknown]
  - Gastrointestinal disorder [Unknown]
  - Mouth ulceration [Unknown]
  - Rash papular [Recovered/Resolved]
  - Constipation [Unknown]
  - Synovitis [Recovered/Resolved]
  - Rotator cuff syndrome [Unknown]
  - Stomatitis [Unknown]
  - Drug hypersensitivity [Unknown]
  - Bursitis [Unknown]
  - Abdominal pain [Unknown]

NARRATIVE: CASE EVENT DATE: 2014
